FAERS Safety Report 4525631-X (Version None)
Quarter: 2004Q4

REPORT INFORMATION
  Report Type: 
  Country: None (occurrence: None)
  Receive Date: 20041213
  Receipt Date: 20041213
  Transmission Date: 20050328
  Serious: Yes (Hospitalization, Disabling, Other)
  Sender: FDA-Public Use
  Company Number: None

PATIENT
  Sex: Female
  Weight: 74.8435 kg

DRUGS (1)
  1. DEPO-PROVERA [Suspect]
     Dosage: 1 SHOT  EVERY 3 MONTHS  INTRAMUSCULAR
     Route: 030
     Dates: start: 20000818, end: 20041210

REACTIONS (8)
  - ANXIETY DISORDER [None]
  - DEPRESSION [None]
  - FIBROMYALGIA [None]
  - INSOMNIA [None]
  - MALAISE [None]
  - MIGRAINE [None]
  - PREGNANCY [None]
  - SYSTEMIC LUPUS ERYTHEMATOSUS [None]
